FAERS Safety Report 18124222 (Version 2)
Quarter: 2020Q3

REPORT INFORMATION
  Report Type: Spontaneous
  Country: US (occurrence: US)
  Receive Date: 20200807
  Receipt Date: 20200818
  Transmission Date: 20201103
  Serious: No
  Sender: FDA-Public Use
  Company Number: US-HBP-2020US020902

PATIENT
  Sex: Male

DRUGS (2)
  1. VALCHLOR [Suspect]
     Active Substance: MECHLORETHAMINE
     Dosage: UNK, QOD
     Route: 061
     Dates: start: 2020, end: 2020
  2. VALCHLOR [Suspect]
     Active Substance: MECHLORETHAMINE
     Indication: CUTANEOUS T-CELL LYMPHOMA
     Dosage: UNK, SINGLE
     Route: 061
     Dates: start: 20190815, end: 202001

REACTIONS (4)
  - Application site irritation [Unknown]
  - Application site infection [Unknown]
  - Condition aggravated [Unknown]
  - Application site pain [Unknown]
